FAERS Safety Report 9442113 (Version 1)
Quarter: 2013Q3

REPORT INFORMATION
  Report Type: Spontaneous
  Country: US (occurrence: None)
  Receive Date: 20130805
  Receipt Date: 20130805
  Transmission Date: 20140515
  Serious: Yes (Death)
  Sender: FDA-Public Use
  Company Number: None

PATIENT
  Age: 86 Year
  Sex: Male

DRUGS (2)
  1. ASPIRIN [Suspect]
     Dosage: 81 MG  DAILY  PO
     Route: 048
  2. CELECOXIB [Suspect]
     Indication: ARTHRITIS
     Dosage: 200 MG DAILY PO
     Route: 048

REACTIONS (7)
  - Cardiac arrest [None]
  - Shock haemorrhagic [None]
  - Gastrointestinal haemorrhage [None]
  - Fatigue [None]
  - Asthenia [None]
  - Abdominal pain [None]
  - Respiratory arrest [None]
